FAERS Safety Report 9980519 (Version 1)
Quarter: 2014Q1

REPORT INFORMATION
  Report Type: Spontaneous
  Country: US (occurrence: US)
  Receive Date: 20140307
  Receipt Date: 20140307
  Transmission Date: 20141002
  Serious: Yes (Hospitalization)
  Sender: FDA-Public Use
  Company Number: US-ASTRAZENECA-2014SE15164

PATIENT
  Age: 87 Year
  Sex: Male
  Weight: 108.9 kg

DRUGS (3)
  1. BRILINTA [Suspect]
     Indication: CARDIOVASCULAR EVENT PROPHYLAXIS
     Dosage: 1 DF
     Route: 048
     Dates: start: 20140221, end: 20140221
  2. UNSPECIFIED [Concomitant]
     Indication: BLOOD GLUCOSE ABNORMAL
  3. PLAVIX [Concomitant]
     Dates: start: 20140204

REACTIONS (2)
  - Pneumonia [Unknown]
  - Dyspnoea [Recovered/Resolved]
